FAERS Safety Report 4721814-4 (Version None)
Quarter: 2005Q3

REPORT INFORMATION
  Report Type: 
  Country: None (occurrence: None)
  Receive Date: 20050721
  Receipt Date: 20050427
  Transmission Date: 20060218
  Serious: Yes (Other)
  Sender: FDA-Public Use
  Company Number: US-BRISTOL-MYERS SQUIBB COMPANY-12947933

PATIENT
  Age: 70 Year
  Sex: Female

DRUGS (17)
  1. COUMADIN [Suspect]
     Indication: HEART VALVE REPLACEMENT
     Dosage: 6MG TWICE WEEKLY + 5MG ALL OTHER DAYS= 37MG/WEEK; 17-MAR-2005:DECREASED TO 5MG NIGHTLY = 35MG/WEEK
     Route: 048
     Dates: start: 20001201
  2. NAMENDA [Suspect]
     Indication: AMNESIA
     Dosage: START 5MG QD; 3/21/05: 5MG BID; 3/28/05: 15MG; 4/4/05: 10MG BID (INCREASED PER STANDARD TITRATION).
     Route: 048
     Dates: start: 20050314
  3. ARICEPT [Concomitant]
  4. CALCIUM GLUCONATE [Concomitant]
  5. DITROPAN [Concomitant]
  6. ESTROGEN [Concomitant]
  7. HYDROCHLOROTHIAZIDE [Concomitant]
  8. LANSOPRAZOLE [Concomitant]
  9. LEVOTHYROXINE SODIUM [Concomitant]
  10. LEXAPRO [Concomitant]
  11. MAGNESIUM [Concomitant]
  12. MULTI-VITAMIN [Concomitant]
  13. NORVASC [Concomitant]
  14. PROVIGIL [Concomitant]
  15. VITAMIN B-12 [Concomitant]
  16. VITAMIN E [Concomitant]
  17. ZOCOR [Concomitant]

REACTIONS (1)
  - INTERNATIONAL NORMALISED RATIO INCREASED [None]
